FAERS Safety Report 20897207 (Version 1)
Quarter: 2022Q2

REPORT INFORMATION
  Report Type: Spontaneous
  Country: AR (occurrence: AR)
  Receive Date: 20220531
  Receipt Date: 20220531
  Transmission Date: 20220721
  Serious: Yes (Death, Hospitalization, Other)
  Sender: FDA-Public Use
  Company Number: AR-PFIZER INC-202200770952

PATIENT
  Age: 75 Year
  Sex: Female

DRUGS (2)
  1. IBRANCE [Suspect]
     Active Substance: PALBOCICLIB
     Indication: Breast cancer metastatic
     Dosage: 125 MG, CYCLIC (DAILY, SCHEME 3X1)
     Dates: start: 20200406
  2. LETROZOLE [Concomitant]
     Active Substance: LETROZOLE

REACTIONS (8)
  - Cardiac arrest [Fatal]
  - Neoplasm progression [Fatal]
  - Femur fracture [Unknown]
  - Dehydration [Unknown]
  - Intentional dose omission [Unknown]
  - Vomiting [Unknown]
  - Malaise [Unknown]
  - Renal disorder [Unknown]
